FAERS Safety Report 7814434 (Version 10)
Quarter: 2013Q1

REPORT INFORMATION
  Report Type: Report from Study
  Country: US (occurrence: US)
  Receive Date: 20110216
  Receipt Date: 20130130
  Transmission Date: 20140127
  Serious: Yes (Death, Other)
  Sender: FDA-Public Use
  Company Number: US-CELGENEUS-163-C5013-11020679

PATIENT
  Age: 74 Year
  Sex: Male
  Weight: 86.2 kg

DRUGS (24)
  1. THALIDOMIDE [Suspect]
     Indication: PLASMA CELL MYELOMA
     Dosage: 50 MILLIGRAM
     Route: 048
     Dates: start: 20090729
  2. THALIDOMIDE [Suspect]
     Dosage: 200 MILLIGRAM
     Route: 048
     Dates: start: 20101020, end: 20101024
  3. MELPHALAN [Suspect]
     Indication: PLASMA CELL MYELOMA
     Dosage: 24 MILLIGRAM
     Route: 065
     Dates: start: 20090729
  4. MELPHALAN [Suspect]
     Dosage: 6 MILLIGRAM
     Route: 065
     Dates: start: 20101020, end: 20101023
  5. PREDNISONE [Suspect]
     Indication: PLASMA CELL MYELOMA
     Dosage: 195 MILLIGRAM
     Route: 065
     Dates: start: 20090729
  6. PREDNISONE [Suspect]
     Dosage: 195 MILLIGRAM
     Route: 065
     Dates: start: 20101020, end: 20101024
  7. PRILOSEC [Concomitant]
     Indication: BARRETT^S OESOPHAGUS
     Dosage: 20 MILLIGRAM
     Route: 048
     Dates: start: 20090715
  8. PRILOSEC [Concomitant]
     Indication: GASTROOESOPHAGEAL REFLUX DISEASE
  9. ACETAMINOPHEN [Concomitant]
     Indication: PYREXIA
     Dosage: 650 MILLIGRAM
     Route: 048
     Dates: start: 20090802, end: 20090806
  10. ACETAMINOPHEN [Concomitant]
     Indication: CHILLS
     Dosage: 650 MILLIGRAM
     Route: 048
     Dates: start: 20090815, end: 20090815
  11. ACETAMINOPHEN [Concomitant]
     Indication: PREMEDICATION
     Dosage: 650 MILLIGRAM
     Route: 048
     Dates: start: 20090815, end: 20091021
  12. ACETAMINOPHEN [Concomitant]
     Indication: TOOTH ABSCESS
  13. ACETAMINOPHEN [Concomitant]
     Indication: BACK PAIN
  14. ASPIRINE [Concomitant]
     Indication: THROMBOSIS PROPHYLAXIS
     Dosage: 325 MILLIGRAM
     Route: 048
     Dates: start: 20090729
  15. DOCUSATE [Concomitant]
     Indication: CONSTIPATION PROPHYLAXIS
     Dosage: 1 TABLET
     Route: 048
     Dates: start: 20090729
  16. SENNA [Concomitant]
     Indication: CONSTIPATION PROPHYLAXIS
     Dosage: 1 TABLET
     Route: 048
     Dates: start: 20090729
  17. PROCRIT [Concomitant]
     Indication: ANAEMIA
     Dosage: 40000 MILLIGRAM
     Route: 058
     Dates: start: 20090701
  18. VITAMIN B12 [Concomitant]
     Indication: ANAEMIA
     Route: 048
     Dates: start: 20090701
  19. ZOMETA [Concomitant]
     Indication: BONE LOSS
     Dosage: 2 MILLIGRAM
     Route: 041
     Dates: start: 20090805, end: 20090805
  20. PAMIDRONATE [Concomitant]
     Indication: BONE LOSS
     Dosage: 30 MILLIGRAM
     Route: 041
     Dates: start: 20090923
  21. ANTIBIOTICS [Concomitant]
     Indication: PROPHYLAXIS
     Route: 048
     Dates: start: 20100113, end: 20100113
  22. EPOETIN ALFA [Concomitant]
     Indication: ANAEMIA
     Dosage: 40000 IU (INTERNATIONAL UNIT)
     Route: 058
     Dates: start: 20090916, end: 20091021
  23. PACKED RED BLOOD CELLS [Concomitant]
     Indication: PRODUCT USED FOR UNKNOWN INDICATION
     Dosage: 2 UNITS
     Route: 041
  24. OMEPRAZOLE [Concomitant]
     Indication: GASTROOESOPHAGEAL REFLUX DISEASE
     Route: 065
     Dates: start: 2009

REACTIONS (1)
  - Oesophageal squamous cell carcinoma [Fatal]
